FAERS Safety Report 8369053-2 (Version None)
Quarter: 2012Q2

REPORT INFORMATION
  Report Type: 
  Country: None (occurrence: None)
  Receive Date: 20120518
  Receipt Date: 20120515
  Transmission Date: 20120825
  Serious: Yes (Hospitalization)
  Sender: FDA-Public Use
  Company Number: IT-ROCHE-1063253

PATIENT
  Sex: Female

DRUGS (15)
  1. VOLTAREN [Concomitant]
     Route: 048
  2. FOLIAMIN [Concomitant]
     Route: 048
     Dates: start: 20110101, end: 20120424
  3. LANSOPRAZOLE [Concomitant]
     Route: 048
     Dates: start: 20110101, end: 20120424
  4. ACTEMRA [Suspect]
     Route: 042
     Dates: start: 20120124, end: 20120410
  5. IVABRADINE [Concomitant]
     Route: 048
     Dates: start: 20110101, end: 20120424
  6. ALIFLUS [Concomitant]
     Route: 055
     Dates: start: 20110101, end: 20120424
  7. OROTRE [Concomitant]
     Route: 048
     Dates: start: 20110101, end: 20120424
  8. ACTEMRA [Suspect]
     Indication: RHEUMATOID ARTHRITIS
     Route: 042
     Dates: start: 20120124, end: 20120410
  9. PREDNISONE TAB [Concomitant]
     Route: 048
     Dates: start: 20120101, end: 20120424
  10. LEVOTHYROXINE SODIUM [Concomitant]
     Route: 048
     Dates: start: 20110101, end: 20120424
  11. VALSARTAN  AND HYDROCHLOROTHIAZIDE [Concomitant]
     Dosage: 160/25 MG
     Route: 048
     Dates: start: 20110101, end: 20120424
  12. PREDNISONE TAB [Concomitant]
     Dosage: FOR 3 DAYS
  13. METHOTREXATE [Concomitant]
     Route: 048
     Dates: start: 20120101, end: 20120424
  14. PREDNISONE TAB [Concomitant]
     Dosage: FOR 3 DAYS
  15. LEXOTAN [Concomitant]
     Dosage: 2.5 MG/ML
     Route: 048

REACTIONS (8)
  - ABDOMINAL DISCOMFORT [None]
  - NAUSEA [None]
  - DYSPNOEA EXERTIONAL [None]
  - VOMITING [None]
  - CHEST PAIN [None]
  - PULMONARY EMBOLISM [None]
  - RASH [None]
  - FACE OEDEMA [None]
